FAERS Safety Report 5970971-0 (Version None)
Quarter: 2008Q4

REPORT INFORMATION
  Report Type: 
  Country: None (occurrence: None)
  Receive Date: 20081128
  Receipt Date: 20081119
  Transmission Date: 20090506
  Serious: Yes (Other)
  Sender: FDA-Public Use
  Company Number: PHHY2008BR28879

PATIENT
  Age: 1 Year
  Sex: Female

DRUGS (2)
  1. CATAFLAM [Suspect]
     Indication: UPPER RESPIRATORY TRACT INFLAMMATION
     Dosage: 16 DRP, Q8H
     Dates: start: 20081116, end: 20081118
  2. AMOXICILLIN [Suspect]
     Indication: UPPER RESPIRATORY TRACT INFLAMMATION
     Dosage: EVERY 8 HOURS.

REACTIONS (4)
  - ANURIA [None]
  - DRUG INEFFECTIVE [None]
  - PAIN [None]
  - URINARY TRACT INFECTION [None]
